FAERS Safety Report 5302103-6 (Version None)
Quarter: 2007Q2

REPORT INFORMATION
  Report Type: 
  Country: None (occurrence: None)
  Receive Date: 20070419
  Receipt Date: 20070402
  Transmission Date: 20071010
  Serious: Yes (Life-Threatening)
  Sender: FDA-Public Use
  Company Number: US-GLAXOSMITHKLINE-B0465291A

PATIENT
  Age: 59 Year
  Sex: Male

DRUGS (2)
  1. ALBUTEROL [Suspect]
     Indication: ASTHMA
     Route: 055
  2. LEVALBUTEROL HCL [Suspect]
     Indication: ASTHMA
     Route: 055

REACTIONS (7)
  - APNOEA [None]
  - BRONCHOSPASM PARADOXICAL [None]
  - CHEST DISCOMFORT [None]
  - DYSPNOEA [None]
  - INFLUENZA LIKE ILLNESS [None]
  - LOSS OF CONSCIOUSNESS [None]
  - WHEEZING [None]
